FAERS Safety Report 18466881 (Version 1)
Quarter: 2020Q4

REPORT INFORMATION
  Report Type: Spontaneous
  Country: US (occurrence: US)
  Receive Date: 20201103
  Receipt Date: 20201103
  Transmission Date: 20210114
  Serious: Yes (Other)
  Sender: FDA-Public Use
  Company Number: None

PATIENT
  Age: 77 Year
  Sex: Male
  Weight: 117.93 kg

DRUGS (10)
  1. AMLODIPINE [Concomitant]
     Active Substance: AMLODIPINE BESYLATE
  2. OTC ALLEGRA [Concomitant]
  3. VOLTAREN [Concomitant]
     Active Substance: DICLOFENAC SODIUM
  4. FENOFIBRATE. [Concomitant]
     Active Substance: FENOFIBRATE
  5. VITAMIN [Concomitant]
     Active Substance: VITAMINS
  6. METRONIDAZOLE GEL [Concomitant]
     Active Substance: METRONIDAZOLE
  7. TYLENOL [Concomitant]
     Active Substance: ACETAMINOPHEN
  8. DESOXIMETRASONE USP 0.05% [Concomitant]
  9. ESOMERPRA MAG [Concomitant]
  10. CELECOXIB 200MG [Suspect]
     Active Substance: CELECOXIB
     Indication: ARTHRITIS
     Dosage: ?          QUANTITY:1 DF DOSAGE FORM;?
     Route: 048
     Dates: start: 20201007, end: 20201025

REACTIONS (3)
  - Product substitution issue [None]
  - Drug ineffective [None]
  - Arthritis [None]

NARRATIVE: CASE EVENT DATE: 20201015
